FAERS Safety Report 12313573 (Version 1)
Quarter: 2016Q2

REPORT INFORMATION
  Report Type: Spontaneous
  Country: US (occurrence: None)
  Receive Date: 20160427
  Receipt Date: 20160427
  Transmission Date: 20160815
  Serious: Yes (Life-Threatening, Other)
  Sender: FDA-Public Use
  Company Number: None

PATIENT
  Age: 72 Year
  Sex: Female
  Weight: 63.05 kg

DRUGS (10)
  1. TRAMADOL HCL [Concomitant]
     Active Substance: TRAMADOL HYDROCHLORIDE
  2. VITAMIN C [Concomitant]
     Active Substance: ASCORBIC ACID
  3. FISH OIL [Concomitant]
     Active Substance: FISH OIL
  4. DULOXETINE. [Concomitant]
     Active Substance: DULOXETINE
  5. CULTURELLE PROBIOTIC [Concomitant]
  6. LEVOTHYROXINE. [Concomitant]
     Active Substance: LEVOTHYROXINE
  7. MULTI VITAMIN [Concomitant]
     Active Substance: VITAMINS
  8. VIBERZI [Suspect]
     Active Substance: ELUXADOLINE
     Indication: IRRITABLE BOWEL SYNDROME
     Dosage: 1 PILLS TWICE DAILY MOUTH
     Route: 048
     Dates: start: 20160103, end: 20160203
  9. CALCIUM WITH VITAMIN D [Concomitant]
     Active Substance: CALCIUM\VITAMIN D
  10. DIVALPROEX [Concomitant]
     Active Substance: DIVALPROEX SODIUM

REACTIONS (11)
  - Chills [None]
  - Aphonia [None]
  - Oropharyngeal pain [None]
  - Pain [None]
  - Ear congestion [None]
  - Fatigue [None]
  - Hypersomnia [None]
  - Dyspnoea [None]
  - Pyrexia [None]
  - Myalgia [None]
  - Abdominal discomfort [None]

NARRATIVE: CASE EVENT DATE: 20160203
